FAERS Safety Report 21312644 (Version 2)
Quarter: 2022Q3

REPORT INFORMATION
  Report Type: Spontaneous
  Country: US (occurrence: US)
  Receive Date: 20220909
  Receipt Date: 20220913
  Transmission Date: 20221027
  Serious: Yes (Other)
  Sender: FDA-Public Use
  Company Number: US-PFIZER INC-202201142495

PATIENT
  Age: 83 Year
  Sex: Female
  Weight: 45.36 kg

DRUGS (3)
  1. PAXLOVID [Interacting]
     Active Substance: NIRMATRELVIR\RITONAVIR
     Indication: COVID-19 treatment
     Dosage: 3 DF, 2X/DAY (3 TABLETS IN THE MORNING AND 3 TABLETS IN THE EVENING)
     Dates: start: 20220830, end: 20220903
  2. HYDROCHLOROTHIAZIDE\LOSARTAN [Interacting]
     Active Substance: HYDROCHLOROTHIAZIDE\LOSARTAN
     Indication: Hypertension
     Dosage: UNK, 1X/DAY (100MG/25MG ONCE A DAY BY MOUTH)
     Route: 048
     Dates: start: 1999
  3. PREDNISONE [Concomitant]
     Active Substance: PREDNISONE
     Indication: Polymyalgia rheumatica
     Dosage: 5 MG, DAILY
     Route: 048

REACTIONS (11)
  - Drug interaction [Unknown]
  - Loss of consciousness [Unknown]
  - Hypoacusis [Unknown]
  - Anxiety [Recovered/Resolved]
  - Dizziness [Recovering/Resolving]
  - Head injury [Unknown]
  - Traumatic haemorrhage [Unknown]
  - Cold sweat [Unknown]
  - Eye injury [Recovered/Resolved]
  - Pulse abnormal [Recovered/Resolved]
  - Hypotension [Unknown]

NARRATIVE: CASE EVENT DATE: 20220831
